FAERS Safety Report 12734341 (Version 4)
Quarter: 2016Q4

REPORT INFORMATION
  Report Type: Report from Study
  Country: US (occurrence: US)
  Receive Date: 20160912
  Receipt Date: 20161123
  Transmission Date: 20170207
  Serious: Yes (Hospitalization)
  Sender: FDA-Public Use
  Company Number: US-BIOGEN-2016BI00289873

PATIENT
  Age: 50 Year
  Sex: Male

DRUGS (1)
  1. TYSABRI [Suspect]
     Active Substance: NATALIZUMAB
     Indication: MULTIPLE SCLEROSIS
     Dosage: INFUSED OVER 1 HOUR
     Route: 042
     Dates: start: 20160808

REACTIONS (8)
  - Malaise [Recovered/Resolved]
  - Hypertension [Recovered/Resolved]
  - Mobility decreased [Recovered/Resolved]
  - Diabetes mellitus [Unknown]
  - Musculoskeletal stiffness [Recovered/Resolved]
  - Pain [Recovered/Resolved]
  - Abdominal pain [Recovered/Resolved]
  - Gallbladder pain [Recovered/Resolved]

NARRATIVE: CASE EVENT DATE: 2016
